FAERS Safety Report 18933677 (Version 3)
Quarter: 2021Q2

REPORT INFORMATION
  Report Type: Spontaneous
  Country: US (occurrence: US)
  Receive Date: 20210224
  Receipt Date: 20210415
  Transmission Date: 20210717
  Serious: No
  Sender: FDA-Public Use
  Company Number: NVSC2021US035169

PATIENT
  Sex: Female

DRUGS (1)
  1. XIIDRA [Suspect]
     Active Substance: LIFITEGRAST
     Indication: DRY EYE
     Dosage: 1 DRP, BID (1 DROP BOTH EYE)
     Route: 065

REACTIONS (4)
  - Eye pain [Unknown]
  - Dysgeusia [Recovered/Resolved]
  - Visual impairment [Unknown]
  - Drug ineffective [Unknown]
